FAERS Safety Report 13671678 (Version 1)
Quarter: 2017Q2

REPORT INFORMATION
  Report Type: Spontaneous
  Country: US (occurrence: US)
  Receive Date: 20170620
  Receipt Date: 20170620
  Transmission Date: 20170830
  Serious: No
  Sender: FDA-Public Use
  Company Number: US-ROCHE-1223571

PATIENT
  Sex: Female

DRUGS (5)
  1. ASPIRIN. [Concomitant]
     Active Substance: ASPIRIN
     Route: 065
  2. FOLIC ACID. [Concomitant]
     Active Substance: FOLIC ACID
     Route: 065
  3. DEXILANT [Concomitant]
     Active Substance: DEXLANSOPRAZOLE
     Route: 065
  4. XELODA [Suspect]
     Active Substance: CAPECITABINE
     Route: 048
  5. XELODA [Suspect]
     Active Substance: CAPECITABINE
     Indication: COLON CANCER METASTATIC
     Dosage: 1000 MG IN AM AND 500 MG IN PM
     Route: 048
     Dates: start: 20130305

REACTIONS (2)
  - Rash generalised [Not Recovered/Not Resolved]
  - Skin ulcer [Not Recovered/Not Resolved]
